FAERS Safety Report 8188725 (Version 5)
Quarter: 2014Q3

REPORT INFORMATION
  Report Type: Spontaneous
  Country: JP (occurrence: JP)
  Receive Date: 20111019
  Receipt Date: 20140801
  Transmission Date: 20150326
  Serious: Yes (Hospitalization, Disabling, Other)
  Sender: FDA-Public Use
  Company Number: JP-ASTELLAS-2011JP007340

PATIENT
  Age: 18 Year
  Sex: Male
  Weight: 42 kg

DRUGS (17)
  1. IMIPENEM [Concomitant]
     Active Substance: IMIPENEM
     Dosage: UNK, UNKNOWN FREQ.
     Dates: start: 20110327, end: 2011
  2. MEROPEN [Concomitant]
     Active Substance: MEROPENEM
     Indication: SEPSIS
     Dosage: 0.5 G, THRICE DAILY
     Route: 041
     Dates: start: 20110321, end: 20110326
  3. PHENYTOIN                          /00017402/ [Concomitant]
     Active Substance: PHENYTOIN
     Indication: CONVULSION
     Dosage: UNK UNK, UNKNOWN FREQ.
     Dates: start: 2011
  4. FUNGUARD [Suspect]
     Active Substance: MICAFUNGIN SODIUM
     Indication: SEPSIS
     Route: 041
     Dates: start: 20110321, end: 20110402
  5. VANCOMYCIN [Concomitant]
     Active Substance: VANCOMYCIN
     Indication: PRODUCT USED FOR UNKNOWN INDICATION
     Route: 041
     Dates: start: 20110317, end: 20110321
  6. CYTARABINE. [Concomitant]
     Active Substance: CYTARABINE
     Indication: ACUTE MONOCYTIC LEUKAEMIA
     Dosage: UNK UNK, UNKNOWN FREQ.
     Route: 065
  7. PIPERACILINA + TAZOBACTAM [Concomitant]
     Indication: SEPTIC SHOCK
     Dosage: UNK UNK, UNKNOWN FREQ.
     Route: 065
     Dates: start: 201103, end: 20110320
  8. IMIPENEM [Concomitant]
     Active Substance: IMIPENEM
     Indication: FEBRILE NEUTROPENIA
     Dosage: UNK UNK, UNKNOWN FREQ.
     Route: 065
     Dates: start: 20110316, end: 201103
  9. DAUNORUBICIN [Concomitant]
     Active Substance: DAUNORUBICIN
     Indication: ACUTE MONOCYTIC LEUKAEMIA
     Dosage: UNK UNK, UNKNOWN FREQ.
     Route: 065
  10. TARGOCID [Concomitant]
     Active Substance: TEICOPLANIN
     Indication: SEPSIS
     Route: 041
     Dates: start: 20110321, end: 20110321
  11. CYTARABINE. [Concomitant]
     Active Substance: CYTARABINE
     Dosage: UNK, UNKNOWN FREQ.
     Route: 065
  12. IMIPENEM [Concomitant]
     Active Substance: IMIPENEM
     Dosage: ??
     Dates: start: 2011
  13. REMODULIN [Concomitant]
     Active Substance: TREPROSTINIL
     Indication: DISSEMINATED INTRAVASCULAR COAGULATION
     Route: 041
     Dates: start: 20110318, end: 20110322
  14. REMINARON [Concomitant]
     Active Substance: GABEXATE MESYLATE
     Indication: PANCREATITIS ACUTE
     Dosage: UNK UNK, UNKNOWN FREQ.
     Route: 065
  15. DORMICUM [Suspect]
     Active Substance: MIDAZOLAM\MIDAZOLAM HYDROCHLORIDE
     Indication: CONVULSION
     Dosage: UNK, UNKNOWN FREQ.
     Route: 065
     Dates: start: 2011
  16. SOLU-MEDROL [Suspect]
     Active Substance: METHYLPREDNISOLONE SODIUM SUCCINATE
     Indication: ACUTE RESPIRATORY DISTRESS SYNDROME
     Route: 042
     Dates: start: 20110321, end: 20110323
  17. FOY [Concomitant]
     Active Substance: GABEXATE MESYLATE
     Indication: PRODUCT USED FOR UNKNOWN INDICATION
     Dosage: UNK UNK, UNKNOWN FREQ.
     Route: 065
     Dates: start: 201103, end: 2011

REACTIONS (3)
  - Pancreatitis acute [Recovered/Resolved]
  - Off label use [Unknown]
  - Posterior reversible encephalopathy syndrome [Recovered/Resolved]

NARRATIVE: CASE EVENT DATE: 2011
